APPROVED DRUG PRODUCT: TEMAZEPAM
Active Ingredient: TEMAZEPAM
Strength: 15MG
Dosage Form/Route: CAPSULE;ORAL
Application: A203482 | Product #002 | TE Code: AB
Applicant: AMNEAL PHARMACEUTICALS
Approved: May 23, 2016 | RLD: No | RS: No | Type: RX